APPROVED DRUG PRODUCT: AMBIEN CR
Active Ingredient: ZOLPIDEM TARTRATE
Strength: 6.25MG
Dosage Form/Route: TABLET, EXTENDED RELEASE;ORAL
Application: N021774 | Product #002 | TE Code: AB
Applicant: COSETTE PHARMACEUTICALS INC
Approved: Sep 2, 2005 | RLD: Yes | RS: No | Type: RX